FAERS Safety Report 8236449-9 (Version None)
Quarter: 2012Q1

REPORT INFORMATION
  Report Type: 
  Country: None (occurrence: None)
  Receive Date: 20120327
  Receipt Date: 20120320
  Transmission Date: 20120608
  Serious: No
  Sender: FDA-Public Use
  Company Number: US-PFIZER INC-2012059537

PATIENT
  Sex: Female

DRUGS (3)
  1. AMBIEN [Concomitant]
     Indication: INSOMNIA
     Dosage: 10 MG, QHS
     Dates: start: 20120305
  2. VENLAFAXINE HCL [Suspect]
     Dosage: 225 MG, UNK
     Route: 048
     Dates: start: 20071114
  3. LORAZEPAM [Concomitant]
     Indication: ANXIETY
     Dosage: 1 MG, PRN

REACTIONS (1)
  - MEDICATION RESIDUE [None]
